FAERS Safety Report 6869332-1 (Version None)
Quarter: 2010Q3

REPORT INFORMATION
  Report Type: 
  Country: None (occurrence: None)
  Receive Date: 20100722
  Receipt Date: 20081003
  Transmission Date: 20110219
  Serious: Yes (Other)
  Sender: FDA-Public Use
  Company Number: US-PFIZER INC-2008064945

PATIENT
  Age: 48 Year
  Sex: Male
  Weight: 72.6 kg

DRUGS (1)
  1. CHANTIX [Suspect]
     Indication: SMOKING CESSATION THERAPY
     Route: 048
     Dates: start: 20080701

REACTIONS (5)
  - DEPRESSION [None]
  - HOMICIDAL IDEATION [None]
  - INSOMNIA [None]
  - MARITAL PROBLEM [None]
  - VIOLENCE-RELATED SYMPTOM [None]
